FAERS Safety Report 5836115-0 (Version None)
Quarter: 2008Q3

REPORT INFORMATION
  Report Type: 
  Country: None (occurrence: None)
  Receive Date: 20080805
  Receipt Date: 20080721
  Transmission Date: 20090109
  Serious: Yes (Hospitalization)
  Sender: FDA-Public Use
  Company Number: IDR-00161

PATIENT
  Age: 70 Year
  Sex: Female

DRUGS (6)
  1. AVLOCARDYL (PROPRANOLOL) STRENGTH:  160 MG [Suspect]
     Indication: OESOPHAGEAL VARICES HAEMORRHAGE
     Dosage: 160 MG DAILY, ORAL, CAPSULE CONTR REL
     Route: 048
  2. MOPRAL (OMEPRAZOLE) [Suspect]
     Dosage: 20 MG DAILY, ORAL, CAPSULE
     Route: 048
  3. SPIRONOLACTONE [Suspect]
     Dosage: 75 MG DAILY, ORAL
     Route: 048
  4. HYPERIUM (RILMENIDINE) [Suspect]
     Dosage: 1 MG DAILY; ORAL
     Route: 048
  5. DESLORATADINE [Suspect]
     Dosage: 5 MG DAILY, ORAL
     Route: 048
  6. NASONEX [Suspect]
     Dosage: 100 MG BID, NASAL
     Route: 045

REACTIONS (3)
  - COOMBS NEGATIVE HAEMOLYTIC ANAEMIA [None]
  - HEPATOSPLENOMEGALY [None]
  - HISTIOCYTOSIS HAEMATOPHAGIC [None]
